FAERS Safety Report 4357321-0 (Version None)
Quarter: 2004Q2

REPORT INFORMATION
  Report Type: 
  Country: None (occurrence: None)
  Receive Date: 20040511
  Receipt Date: 20040511
  Transmission Date: 20050107
  Serious: Yes (Other)
  Sender: FDA-Public Use
  Company Number: None

PATIENT
  Age: 48 Year
  Sex: Female

DRUGS (6)
  1. MORPHINE SUL INJ [Suspect]
     Indication: COLECTOMY PARTIAL
     Dosage: 4 MG IV
     Route: 042
     Dates: start: 20040507
  2. GENERAL ANESTESIA [Concomitant]
  3. MEFOXIN [Concomitant]
  4. LR-3L [Concomitant]
  5. PROPOFOL [Concomitant]
  6. FENTANYL [Concomitant]

REACTIONS (2)
  - PHARMACEUTICAL PRODUCT COMPLAINT [None]
  - URTICARIA [None]
